FAERS Safety Report 5118527-6 (Version None)
Quarter: 2006Q4

REPORT INFORMATION
  Report Type: 
  Country: None (occurrence: None)
  Receive Date: 20061002
  Receipt Date: 20060704
  Transmission Date: 20070319
  Serious: Yes (Hospitalization)
  Sender: FDA-Public Use
  Company Number: PHBS2006TR09935

PATIENT
  Age: 56 Year
  Sex: Male

DRUGS (1)
  1. GLEEVEC [Suspect]
     Indication: GASTROINTESTINAL STROMAL TUMOUR
     Dosage: 800 MG/D
     Route: 048
     Dates: start: 20010601, end: 20060601

REACTIONS (8)
  - ABDOMINAL PAIN UPPER [None]
  - ANOREXIA [None]
  - ASTHENIA [None]
  - GASTRITIS [None]
  - NAUSEA [None]
  - NEPHROTIC SYNDROME [None]
  - VOMITING [None]
  - WEIGHT DECREASED [None]
